FAERS Safety Report 6437128-0 (Version None)
Quarter: 2009Q4

REPORT INFORMATION
  Report Type: 
  Country: None (occurrence: None)
  Receive Date: 20091112
  Receipt Date: 20091105
  Transmission Date: 20100525
  Serious: Yes (Life-Threatening, Hospitalization, Disabling)
  Sender: FDA-Public Use
  Company Number: GB-JNJFOC-20091101469

PATIENT
  Sex: Female

DRUGS (2)
  1. REMICADE [Suspect]
     Dosage: INDUCTION PHASE
     Route: 042
     Dates: start: 19990101, end: 20091103
  2. REMICADE [Suspect]
     Indication: CROHN'S DISEASE
     Dosage: STARTED 2-3 YEARS AGO
     Route: 042
     Dates: start: 19990101, end: 20091103

REACTIONS (7)
  - ABASIA [None]
  - ANAPHYLACTIC REACTION [None]
  - C-REACTIVE PROTEIN INCREASED [None]
  - CYANOSIS [None]
  - DYSPNOEA [None]
  - INFUSION RELATED REACTION [None]
  - SENSATION OF HEAVINESS [None]
